APPROVED DRUG PRODUCT: CILOSTAZOL
Active Ingredient: CILOSTAZOL
Strength: 50MG
Dosage Form/Route: TABLET;ORAL
Application: A077323 | Product #002
Applicant: RISING PHARMA HOLDINGS INC
Approved: Apr 20, 2006 | RLD: No | RS: No | Type: DISCN